FAERS Safety Report 14938067 (Version 1)
Quarter: 2018Q2

REPORT INFORMATION
  Report Type: Spontaneous
  Country: IT (occurrence: IT)
  Receive Date: 20180525
  Receipt Date: 20180525
  Transmission Date: 20180711
  Serious: Yes (Other)
  Sender: FDA-Public Use
  Company Number: IT-GUERBET-IT-20180091

PATIENT
  Age: 54 Year
  Sex: Female
  Weight: 58 kg

DRUGS (1)
  1. DOTAREM [Suspect]
     Active Substance: GADOTERATE MEGLUMINE
     Indication: NUCLEAR MAGNETIC RESONANCE IMAGING
     Route: 042
     Dates: start: 20180504, end: 20180504

REACTIONS (4)
  - Urticaria [Recovering/Resolving]
  - Face oedema [Recovering/Resolving]
  - Pruritus generalised [Recovering/Resolving]
  - Erythema [Recovering/Resolving]

NARRATIVE: CASE EVENT DATE: 20180504
